FAERS Safety Report 9469894 (Version 1)
Quarter: 2013Q3

REPORT INFORMATION
  Report Type: Spontaneous
  Country: PE (occurrence: PE)
  Receive Date: 20130822
  Receipt Date: 20130822
  Transmission Date: 20140515
  Serious: Yes (Hospitalization)
  Sender: FDA-Public Use
  Company Number: PE-ROCHE-1263387

PATIENT
  Age: 20 Year
  Sex: Female
  Weight: 95 kg

DRUGS (5)
  1. CELLCEPT [Suspect]
     Indication: LUPUS NEPHRITIS
     Route: 048
     Dates: start: 201001
  2. METICORTEN [Suspect]
     Indication: PRODUCT USED FOR UNKNOWN INDICATION
     Route: 065
     Dates: start: 201001
  3. PLAQUENIL [Concomitant]
     Route: 065
     Dates: start: 201001
  4. WARFARIN [Concomitant]
     Route: 065
     Dates: start: 201002
  5. PROVERA [Concomitant]

REACTIONS (2)
  - Menorrhagia [Recovering/Resolving]
  - Haemoglobin decreased [Unknown]
